FAERS Safety Report 15617078 (Version 1)
Quarter: 2018Q4

REPORT INFORMATION
  Report Type: Spontaneous
  Country: US (occurrence: US)
  Receive Date: 20181109
  Receipt Date: 20181109
  Transmission Date: 20190205
  Serious: Yes (Other)
  Sender: FDA-Public Use
  Company Number: None

PATIENT

DRUGS (1)
  1. BRILINTA [Suspect]
     Active Substance: TICAGRELOR
     Indication: ANTICOAGULANT THERAPY
     Route: 048
     Dates: start: 20180906, end: 20180907

REACTIONS (3)
  - Mental impairment [None]
  - Haemorrhage [None]
  - Feeling abnormal [None]

NARRATIVE: CASE EVENT DATE: 20180906
